FAERS Safety Report 12686537 (Version 2)
Quarter: 2016Q3

REPORT INFORMATION
  Report Type: Spontaneous
  Country: DE (occurrence: DE)
  Receive Date: 20160825
  Receipt Date: 20160901
  Transmission Date: 20161109
  Serious: Yes (Hospitalization, Other)
  Sender: FDA-Public Use
  Company Number: DE-PFIZER INC-2016395525

PATIENT
  Age: 23 Year
  Sex: Female
  Weight: 83 kg

DRUGS (1)
  1. CIPROFLOXACIN. [Suspect]
     Active Substance: CIPROFLOXACIN
     Dosage: 2X500 MG, DAILY

REACTIONS (3)
  - Hepatic encephalopathy [Recovered/Resolved]
  - Brain oedema [Recovered/Resolved]
  - Acute hepatic failure [Recovered/Resolved]
